FAERS Safety Report 8964837 (Version 1)
Quarter: 2012Q4

REPORT INFORMATION
  Report Type: 
  Country: US (occurrence: US)
  Receive Date: 20121213
  Receipt Date: 20121213
  Transmission Date: 20130627
  Serious: Yes (Other)
  Sender: FDA-Public Use
  Company Number: US-PFIZER INC-2012313541

PATIENT
  Age: 55 Year
  Sex: Male
  Weight: 81.63 kg

DRUGS (2)
  1. LYRICA [Suspect]
     Indication: PAIN
     Dosage: 150 mg, 1x/day
     Route: 048
     Dates: start: 20121001
  2. FENTANYL [Concomitant]
     Dosage: UNK

REACTIONS (9)
  - Respiratory arrest [Unknown]
  - Muscle spasms [Not Recovered/Not Resolved]
  - Dyspnoea [Not Recovered/Not Resolved]
  - Euphoric mood [Not Recovered/Not Resolved]
  - Somnolence [Not Recovered/Not Resolved]
  - Feeling cold [Not Recovered/Not Resolved]
  - Pyrexia [Not Recovered/Not Resolved]
  - Muscle tightness [Not Recovered/Not Resolved]
  - Gastric disorder [Not Recovered/Not Resolved]
